FAERS Safety Report 5053217-X (Version None)
Quarter: 2006Q3

REPORT INFORMATION
  Report Type: 
  Country: None (occurrence: None)
  Receive Date: 20060717
  Receipt Date: 20060707
  Transmission Date: 20061208
  Serious: Yes (Hospitalization)
  Sender: FDA-Public Use
  Company Number: FR-ABBOTT-06P-056-0337680-00

PATIENT
  Age: 20 Year
  Sex: Female

DRUGS (8)
  1. DEPAKOTE [Suspect]
     Indication: SCHIZOPHRENIA
     Route: 048
  2. CYAMEMAZINE [Suspect]
     Indication: SCHIZOPHRENIA
     Route: 048
     Dates: end: 20060518
  3. CYAMEMAZINE [Suspect]
     Dosage: 50-50-50-100=250 DROPS DAILY
     Route: 048
     Dates: start: 20060519
  4. ALPRAZOLAM [Suspect]
     Indication: SCHIZOPHRENIA
     Route: 048
  5. HYDROXYZINE HYDROCHLORIDE [Suspect]
     Indication: SCHIZOPHRENIA
     Route: 048
  6. ARIPIPRAZOLE [Suspect]
     Indication: SCHIZOPHRENIA
     Route: 048
     Dates: start: 20060415
  7. OLANZAPINE [Suspect]
     Indication: SCHIZOPHRENIA
     Route: 048
     Dates: start: 20060512, end: 20060517
  8. OLANZAPINE [Suspect]
     Route: 048
     Dates: start: 20060519

REACTIONS (1)
  - PHOTODERMATOSIS [None]
